FAERS Safety Report 9191239 (Version 2)
Quarter: 2013Q2

REPORT INFORMATION
  Report Type: Spontaneous
  Country: US (occurrence: US)
  Receive Date: 20130326
  Receipt Date: 20130603
  Transmission Date: 20140414
  Serious: No
  Sender: FDA-Public Use
  Company Number: US-ASTRAZENECA-2013SE16634

PATIENT
  Age: 71 Year
  Sex: Male
  Weight: 86.2 kg

DRUGS (10)
  1. CRESTOR [Suspect]
     Indication: BLOOD CHOLESTEROL ABNORMAL
     Route: 048
     Dates: end: 201211
  2. CRESTOR [Suspect]
     Indication: BLOOD CHOLESTEROL ABNORMAL
     Route: 048
     Dates: start: 201211
  3. AMARYL [Concomitant]
     Indication: DIABETES MELLITUS
     Route: 048
  4. PLAVIX [Concomitant]
     Indication: PERIPHERAL VASCULAR DISORDER
     Route: 048
  5. BABY ASPIRIN [Concomitant]
     Indication: PERIPHERAL VASCULAR DISORDER
     Dosage: 1 DAILY
     Route: 048
  6. CELEXA [Concomitant]
     Indication: DEPRESSION
     Route: 048
  7. ZANTAC [Concomitant]
     Indication: GASTROOESOPHAGEAL REFLUX DISEASE
     Route: 048
  8. ZANTAC [Concomitant]
     Indication: MULTIPLE ALLERGIES
     Route: 048
  9. FOSINOPRIL [Concomitant]
     Indication: HYPERTENSION
     Route: 048
  10. LOPRESSOR [Concomitant]
     Indication: HYPERTENSION
     Route: 048

REACTIONS (4)
  - Dry skin [Unknown]
  - Nervousness [Unknown]
  - Irritability [Unknown]
  - Pruritus [Unknown]
